FAERS Safety Report 7232944-X (Version None)
Quarter: 2011Q1

REPORT INFORMATION
  Report Type: 
  Country: None (occurrence: None)
  Receive Date: 20110119
  Receipt Date: 20110106
  Transmission Date: 20110831
  Serious: Yes (Death, Other)
  Sender: FDA-Public Use
  Company Number: US-ELI_LILLY_AND_COMPANY-US201012000076

PATIENT
  Sex: Male
  Weight: 46.259 kg

DRUGS (15)
  1. CLARITIN [Concomitant]
     Dosage: 10 MG, DAILY (1/D)
     Dates: start: 20100816
  2. ONDANSETRON [Concomitant]
     Dosage: 8 MG, 2/D
     Dates: start: 20100719
  3. ADCIRCA [Suspect]
     Indication: PULMONARY ARTERIAL HYPERTENSION
     Dosage: 40 MG, DAILY (1/D)
     Dates: start: 20100129
  4. GENTAMICIN SULFATE [Concomitant]
     Dosage: UNK, UNK
     Dates: start: 20091218
  5. HECTOROL [Concomitant]
     Dosage: 2.5 MCI, UNK
     Dates: start: 20100809
  6. METOCLOPRAMIDE [Concomitant]
     Dosage: 10 MG, OTHER
     Dates: start: 20100710
  7. OXYCODONE [Concomitant]
     Dosage: 5 MG, UNK
     Dates: start: 20100710
  8. FOSRENOL [Concomitant]
     Dosage: 1000 MG, 3/D
     Route: 048
     Dates: start: 20100816
  9. RENVELA [Concomitant]
     Dosage: 800 MG, 3/D
     Dates: start: 20100511
  10. FAMOTIDINE [Concomitant]
     Dosage: 20 MG, DAILY (1/D)
     Dates: start: 20100710
  11. HYDROCODONE BITARTRATE AND ACETAMINOPHEN [Concomitant]
     Dates: start: 20100710
  12. LEXAPRO [Concomitant]
     Dosage: 20 MG, DAILY (1/D)
     Dates: start: 20091218
  13. OXYGEN [Concomitant]
     Dosage: 5 LITER, UNK
     Dates: start: 20100702
  14. PROTONIX [Concomitant]
     Dosage: 40 MG, 2/D
     Dates: start: 20100727
  15. LIDOCAINE JELLY [Concomitant]
     Indication: PAIN
     Dosage: 1 D/F, AS NEEDED
     Dates: start: 20100714

REACTIONS (1)
  - DEATH [None]
